FAERS Safety Report 8903401 (Version 1)
Quarter: 2012Q4

REPORT INFORMATION
  Report Type: 
  Country: FI (occurrence: FI)
  Receive Date: 20121113
  Receipt Date: 20121113
  Transmission Date: 20130627
  Serious: Yes (Other)
  Sender: FDA-Public Use
  Company Number: FI-JNJFOC-20121104297

PATIENT
  Age: 9 Year
  Sex: Male

DRUGS (6)
  1. REMICADE [Suspect]
     Indication: JUVENILE ARTHRITIS
     Dosage: dose - 3.4 mg/kg
     Route: 042
  2. REMICADE [Suspect]
     Indication: JUVENILE ARTHRITIS
     Route: 042
  3. REMICADE [Suspect]
     Indication: JUVENILE ARTHRITIS
     Route: 042
  4. REMICADE [Suspect]
     Indication: UVEITIS
     Dosage: dose - 3.4 mg/kg
     Route: 042
  5. REMICADE [Suspect]
     Indication: UVEITIS
     Route: 042
  6. REMICADE [Suspect]
     Indication: UVEITIS
     Route: 042

REACTIONS (4)
  - Dyspnoea [Unknown]
  - Urticaria [Unknown]
  - Flushing [Unknown]
  - Infusion related reaction [Unknown]
